FAERS Safety Report 4365198-2 (Version None)
Quarter: 2004Q2

REPORT INFORMATION
  Report Type: 
  Country: None (occurrence: None)
  Receive Date: 20040525
  Receipt Date: 20040322
  Transmission Date: 20050107
  Serious: No
  Sender: FDA-Public Use
  Company Number: PHEH2004US01910

PATIENT
  Age: 72 Year
  Sex: Female
  Weight: 83.4 kg

DRUGS (6)
  1. ZELNORM [Suspect]
     Indication: IRRITABLE BOWEL SYNDROME
     Dosage: 3 MG, QD, UNK
     Route: 048
     Dates: start: 20030801, end: 20040210
  2. NEXIUM [Concomitant]
  3. MIRALAX [Concomitant]
  4. CITRACAL [Concomitant]
  5. MICARDIS [Concomitant]
  6. XANAX [Concomitant]

REACTIONS (1)
  - DYSGEUSIA [None]
